FAERS Safety Report 8302575-9 (Version None)
Quarter: 2012Q2

REPORT INFORMATION
  Report Type: 
  Country: None (occurrence: None)
  Receive Date: 20120405
  Receipt Date: 20120223
  Transmission Date: 20120825
  Serious: Yes (Other)
  Sender: FDA-Public Use
  Company Number: 2012030961

PATIENT
  Age: 53 Year
  Sex: Female

DRUGS (4)
  1. PRIVIGEN [Suspect]
  2. PRIVIGEN [Suspect]
     Indication: PSEUDOMEMBRANOUS COLITIS
     Dosage: 15 G
     Route: 042
     Dates: start: 20120114, end: 20120118
  3. PRIVIGEN [Suspect]
     Indication: PSEUDOMEMBRANOUS COLITIS
     Dosage: 15 G
     Route: 042
     Dates: start: 20120114, end: 20120118
  4. PRIVIGEN [Suspect]

REACTIONS (2)
  - OFF LABEL USE [None]
  - HAEMOLYSIS [None]
